FAERS Safety Report 17674099 (Version 1)
Quarter: 2020Q2

REPORT INFORMATION
  Report Type: Report from Study
  Country: None (occurrence: IL)
  Receive Date: 20200415
  Receipt Date: 20200415
  Transmission Date: 20200714
  Serious: Yes (Hospitalization)
  Sender: FDA-Public Use
  Company Number: IL-ABBVIE-14P-082-1260674-00

PATIENT
  Age: 25 Year
  Sex: Female
  Weight: 47 kg

DRUGS (6)
  1. VITAMIN B12 [Concomitant]
     Active Substance: CYANOCOBALAMIN
     Indication: PRODUCT USED FOR UNKNOWN INDICATION
  2. HUMIRA [Suspect]
     Active Substance: ADALIMUMAB
     Indication: CROHN^S DISEASE
     Route: 058
     Dates: start: 201310
  3. MODULEN NUTRITION [Concomitant]
     Indication: PRODUCT USED FOR UNKNOWN INDICATION
  4. HUMIRA [Suspect]
     Active Substance: ADALIMUMAB
     Indication: CROHN^S DISEASE
     Route: 058
     Dates: start: 20080923, end: 2012
  5. CALCIUM [Concomitant]
     Active Substance: CALCIUM
     Indication: PRODUCT USED FOR UNKNOWN INDICATION
  6. HUMIRA [Suspect]
     Active Substance: ADALIMUMAB
     Route: 058

REACTIONS (12)
  - Intestinal perforation [Unknown]
  - Pain in jaw [Recovered/Resolved]
  - Drug ineffective [Recovering/Resolving]
  - Headache [Recovered/Resolved]
  - Product storage error [Unknown]
  - Rash [Not Recovered/Not Resolved]
  - Post procedural complication [Unknown]
  - Asthenia [Not Recovered/Not Resolved]
  - Crohn^s disease [Recovering/Resolving]
  - Influenza [Not Recovered/Not Resolved]
  - Crohn^s disease [Recovered/Resolved]
  - Abscess [Unknown]

NARRATIVE: CASE EVENT DATE: 201310
